APPROVED DRUG PRODUCT: ISOSORBIDE DINITRATE
Active Ingredient: ISOSORBIDE DINITRATE
Strength: 30MG
Dosage Form/Route: TABLET;ORAL
Application: A087946 | Product #001 | TE Code: AB
Applicant: PH HEALTH LTD
Approved: Jan 12, 1988 | RLD: No | RS: Yes | Type: RX